FAERS Safety Report 20136620 (Version 2)
Quarter: 2021Q4

REPORT INFORMATION
  Report Type: Report from Study
  Country: US (occurrence: US)
  Receive Date: 20211201
  Receipt Date: 20211203
  Transmission Date: 20220303
  Serious: No
  Sender: FDA-Public Use
  Company Number: US-BRISTOL-MYERS SQUIBB COMPANY-BMS-2021-129327

PATIENT
  Age: 79 Year
  Sex: Female
  Weight: 66.7 kg

DRUGS (1)
  1. APIXABAN [Suspect]
     Active Substance: APIXABAN
     Indication: Pulmonary embolism
     Dosage: 5 MILLIGRAM, BID
     Route: 048
     Dates: start: 202111

REACTIONS (4)
  - Blood pressure fluctuation [Unknown]
  - Cough [Unknown]
  - Oxygen saturation decreased [Unknown]
  - Blood pressure increased [Unknown]
